FAERS Safety Report 6632406-4 (Version None)
Quarter: 2010Q1

REPORT INFORMATION
  Report Type: 
  Country: None (occurrence: None)
  Receive Date: 20100312
  Receipt Date: 20090812
  Transmission Date: 20100710
  Serious: Yes (Hospitalization)
  Sender: FDA-Public Use
  Company Number: 108434

PATIENT
  Age: 38 Year
  Sex: Female
  Weight: 73 kg

DRUGS (6)
  1. AVONEX [Suspect]
     Indication: MULTIPLE SCLEROSIS
     Route: 030
     Dates: start: 19960601, end: 19970602
  2. TRANXENE [Concomitant]
     Indication: TREMOR
  3. PRIMIDONE [Concomitant]
     Indication: ANXIETY
  4. PHEONBARBITAL [Concomitant]
     Indication: CONVULSION
  5. VISTARIL [Concomitant]
     Indication: NERVOUSNESS
  6. VISTARIL [Concomitant]
     Indication: ANXIETY

REACTIONS (3)
  - HEAT STROKE [None]
  - MULTIPLE SCLEROSIS RELAPSE [None]
  - WHITE BLOOD CELL COUNT DECREASED [None]
